FAERS Safety Report 8145099-4 (Version None)
Quarter: 2012Q1

REPORT INFORMATION
  Report Type: 
  Country: None (occurrence: None)
  Receive Date: 20120217
  Receipt Date: 20120213
  Transmission Date: 20120608
  Serious: Yes (Death, Hospitalization)
  Sender: FDA-Public Use
  Company Number: PHEH2011US011553

PATIENT
  Sex: Female

DRUGS (4)
  1. METHOTREXATE [Suspect]
  2. ACYCLOVIR [Concomitant]
     Indication: PROPHYLAXIS
     Dosage: 400 MG, BID
     Route: 048
  3. HYPER-CVAD [Concomitant]
  4. GLEEVEC [Suspect]
     Indication: ACUTE LYMPHOCYTIC LEUKAEMIA
     Dosage: 600 MG, DAILY
     Route: 048
     Dates: start: 20111027, end: 20111207

REACTIONS (7)
  - RASH [None]
  - MULTI-ORGAN FAILURE [None]
  - MUCOSAL INFLAMMATION [None]
  - RENAL FAILURE [None]
  - TOXICITY TO VARIOUS AGENTS [None]
  - GENERAL PHYSICAL HEALTH DETERIORATION [None]
  - FOOD INTOLERANCE [None]
